FAERS Safety Report 5660401-0 (Version None)
Quarter: 2008Q1

REPORT INFORMATION
  Report Type: 
  Country: None (occurrence: None)
  Receive Date: 20080311
  Receipt Date: 20071017
  Transmission Date: 20080703
  Serious: No
  Sender: FDA-Public Use
  Company Number: US-BAYER-200713391BCC

PATIENT
  Age: 87 Year
  Sex: Female
  Weight: 64 kg

DRUGS (4)
  1. ALEVE [Suspect]
     Indication: ARTHRITIS
     Dosage: TOTAL DAILY DOSE: 880 MG  UNIT DOSE: 220 MG
     Route: 048
     Dates: start: 20040101
  2. ALEVE [Suspect]
     Dosage: TOTAL DAILY DOSE: 440 MG  UNIT DOSE: 220 MG
     Route: 048
     Dates: start: 20060101
  3. BENAZEPRIL HYDROCHLORIDE [Concomitant]
  4. NORVASC [Concomitant]

REACTIONS (1)
  - ALOPECIA [None]
